FAERS Safety Report 5893653-2 (Version None)
Quarter: 2008Q3

REPORT INFORMATION
  Report Type: 
  Country: None (occurrence: None)
  Receive Date: 20080923
  Receipt Date: 20071002
  Transmission Date: 20090109
  Serious: No
  Sender: FDA-Public Use
  Company Number: US-ASTRAZENECA-2007UW22999

PATIENT
  Age: 53 Year
  Sex: Female

DRUGS (7)
  1. SEROQUEL [Suspect]
     Indication: POST-TRAUMATIC STRESS DISORDER
     Route: 048
  2. AMBIEN [Concomitant]
  3. TRAZODONE HCL [Concomitant]
  4. PROTONIX [Concomitant]
  5. EFFEXOR XR [Concomitant]
  6. CRESTOR [Concomitant]
  7. FLORINEF [Concomitant]

REACTIONS (1)
  - MENTAL DISORDER [None]
